FAERS Safety Report 8024584-X (Version None)
Quarter: 2011Q4

REPORT INFORMATION
  Report Type: 
  Country: None (occurrence: None)
  Receive Date: 20111130
  Receipt Date: 20110616
  Transmission Date: 20120403
  Serious: Yes (Other)
  Sender: FDA-Public Use
  Company Number: PHHY2011US53868

PATIENT
  Sex: Female

DRUGS (7)
  1. FAMOTIDINE [Concomitant]
  2. ALPRAZOLAM [Concomitant]
  3. HYDRALAZINE HCL [Concomitant]
  4. TEKTURNA [Suspect]
     Dosage: 150 MG, QD
  5. CELEXA [Concomitant]
  6. ASPIRIN [Concomitant]
  7. CLONIDINE [Concomitant]

REACTIONS (7)
  - SKIN EXFOLIATION [None]
  - ERYTHEMA [None]
  - RASH [None]
  - PRURITUS [None]
  - SWELLING FACE [None]
  - DRUG HYPERSENSITIVITY [None]
  - OEDEMA PERIPHERAL [None]
